FAERS Safety Report 21961816 (Version 1)
Quarter: 2023Q1

REPORT INFORMATION
  Report Type: Spontaneous
  Country: US (occurrence: None)
  Receive Date: 20230204
  Receipt Date: 20230204
  Transmission Date: 20230418
  Serious: Yes (Disabling)
  Sender: FDA-Public Use
  Company Number: None

PATIENT
  Age: 62 Year
  Sex: Female
  Weight: 54 kg

DRUGS (5)
  1. SYSTANE LUBRICANT [Suspect]
     Active Substance: POLYETHYLENE GLYCOL 400\PROPYLENE GLYCOL
     Indication: Eye lubrication therapy
     Dosage: FREQUENCY : TWICE A DAY;?OTHER ROUTE : DROPS APPLIED TO BOTH EYES;?
     Route: 050
     Dates: start: 20230113, end: 20230117
  2. VITAMIN B [Concomitant]
     Active Substance: VITAMIN B
  3. C [Concomitant]
  4. D [Concomitant]
  5. VALERIAN [Concomitant]
     Active Substance: VALERIAN

REACTIONS (16)
  - Photopsia [None]
  - Adverse drug reaction [None]
  - Photosensitivity reaction [None]
  - Vitreous floaters [None]
  - Pruritus [None]
  - Eyelids pruritus [None]
  - Swelling face [None]
  - Swelling of eyelid [None]
  - Periorbital swelling [None]
  - Vitreous disorder [None]
  - Eyelid rash [None]
  - Rash [None]
  - Rash pruritic [None]
  - Burning sensation [None]
  - Periorbital irritation [None]
  - Asthenopia [None]

NARRATIVE: CASE EVENT DATE: 20230114
